FAERS Safety Report 5257084-0 (Version None)
Quarter: 2007Q1

REPORT INFORMATION
  Report Type: 
  Country: None (occurrence: None)
  Receive Date: 20070302
  Receipt Date: 20070216
  Transmission Date: 20070707
  Serious: Yes (Other)
  Sender: FDA-Public Use
  Company Number: SPV1-2007-00785

PATIENT
  Age: 51 Year
  Sex: Male
  Weight: 84.4 kg

DRUGS (3)
  1. AGRYLIN [Suspect]
     Indication: POLYCYTHAEMIA VERA
     Dosage: 0.5 MG, 4X/DAY:QID, ORAL
     Route: 048
     Dates: start: 20030506, end: 20070206
  2. AGRYLIN [Suspect]
     Indication: POLYCYTHAEMIA VERA
     Dosage: 0.5 MG, 4X/DAY:QID, ORAL
     Route: 048
     Dates: start: 20070216
  3. CIPRO [Suspect]
     Dates: start: 20070125, end: 20070204

REACTIONS (2)
  - DRUG INTERACTION [None]
  - PLATELET COUNT DECREASED [None]
